FAERS Safety Report 21073985 (Version 1)
Quarter: 2022Q3

REPORT INFORMATION
  Report Type: Spontaneous
  Country: ES (occurrence: None)
  Receive Date: 20220713
  Receipt Date: 20220713
  Transmission Date: 20221027
  Serious: Yes (Life-Threatening, Hospitalization)
  Sender: FDA-Public Use
  Company Number: ES-ROCHE-3136190

PATIENT
  Age: 34 Year
  Sex: Female

DRUGS (11)
  1. RIVOTRIL [Suspect]
     Active Substance: CLONAZEPAM
     Indication: Intentional overdose
     Route: 048
     Dates: start: 20220515, end: 20220515
  2. QUETIAPINE [Suspect]
     Active Substance: QUETIAPINE
     Indication: Intentional overdose
     Route: 048
     Dates: start: 20220515, end: 20220515
  3. OXCARBAZEPINE [Concomitant]
     Active Substance: OXCARBAZEPINE
     Indication: Borderline personality disorder
     Route: 048
     Dates: start: 20210623
  4. TOPIRAMATE [Concomitant]
     Active Substance: TOPIRAMATE
     Indication: Borderline personality disorder
     Route: 048
     Dates: start: 200909
  5. METAMIZOLE [Concomitant]
     Active Substance: METAMIZOLE
  6. OMEPRAZOLE [Concomitant]
     Active Substance: OMEPRAZOLE
  7. ACETAMINOPHEN [Concomitant]
     Active Substance: ACETAMINOPHEN
  8. TAMSULOSIN [Concomitant]
     Active Substance: TAMSULOSIN
  9. RIZATRIPTAN [Concomitant]
     Active Substance: RIZATRIPTAN
  10. ZOLPIDEM [Concomitant]
     Active Substance: ZOLPIDEM TARTRATE
  11. VENLAFAXINE [Concomitant]
     Active Substance: VENLAFAXINE HYDROCHLORIDE

REACTIONS (1)
  - Depressed level of consciousness [Recovered/Resolved]

NARRATIVE: CASE EVENT DATE: 20220515
